FAERS Safety Report 10542576 (Version 1)
Quarter: 2014Q3

REPORT INFORMATION
  Report Type: Spontaneous
  Country: US (occurrence: None)
  Receive Date: 20140731
  Receipt Date: 20140731
  Transmission Date: 20150326
  Serious: Yes (Other)
  Sender: FDA-Public Use
  Company Number: US-JNJFOC-20140106556

PATIENT
  Age: 32 Year
  Sex: Male
  Weight: 86.18 kg

DRUGS (1)
  1. IMODIUM [Suspect]
     Active Substance: LOPERAMIDE HYDROCHLORIDE
     Indication: DRUG WITHDRAWAL SYNDROME

REACTIONS (2)
  - Overdose [None]
  - Off label use [None]
